FAERS Safety Report 6986027-4 (Version None)
Quarter: 2010Q3

REPORT INFORMATION
  Report Type: 
  Country: None (occurrence: None)
  Receive Date: 20100910
  Receipt Date: 20100902
  Transmission Date: 20110219
  Serious: Yes (Death, Hospitalization)
  Sender: FDA-Public Use
  Company Number: A-NJ2009-26357

PATIENT
  Age: 66 Year
  Sex: Male

DRUGS (1)
  1. TRACLEER [Suspect]
     Indication: PULMONARY ARTERIAL HYPERTENSION
     Dosage: UNK ORAL
     Route: 048
     Dates: start: 20030502, end: 20100829

REACTIONS (8)
  - DYSPNOEA [None]
  - IMPAIRED HEALING [None]
  - LEG AMPUTATION [None]
  - OFF LABEL USE [None]
  - PERIPHERAL VASCULAR DISORDER [None]
  - SKIN GRAFT [None]
  - SKIN ULCER [None]
  - TOE AMPUTATION [None]
